FAERS Safety Report 15646558 (Version 1)
Quarter: 2018Q4

REPORT INFORMATION
  Report Type: Spontaneous
  Country: CH (occurrence: CH)
  Receive Date: 20181122
  Receipt Date: 20181122
  Transmission Date: 20190205
  Serious: Yes (Hospitalization)
  Sender: FDA-Public Use
  Company Number: CH-TEVA-2018-CH-977071

PATIENT
  Age: 61 Year
  Sex: Male
  Weight: 77.5 kg

DRUGS (12)
  1. BILOL [Concomitant]
     Active Substance: BISOPROLOL
  2. PANTOPRAZOL ACTAVIS [Concomitant]
     Active Substance: PANTOPRAZOLE SODIUM
  3. NEO-MERCAZOLE [Concomitant]
     Active Substance: CARBIMAZOLE
  4. ASPIRIN CARDIO [Concomitant]
     Active Substance: ASPIRIN
  5. VANCOCIN [Suspect]
     Active Substance: VANCOMYCIN HYDROCHLORIDE
     Indication: OSTEOMYELITIS
     Route: 042
     Dates: start: 20181003, end: 20181022
  6. CEFEPIME [Suspect]
     Active Substance: CEFEPIME HYDROCHLORIDE
     Indication: OSTEOMYELITIS
     Route: 042
     Dates: start: 20181003, end: 20181022
  7. ATORVASTATIN PFIZER [Concomitant]
     Active Substance: ATORVASTATIN
  8. KCL HAUSMANN [Concomitant]
  9. METOLAZON [Concomitant]
     Active Substance: METOLAZONE
  10. CLEXANE [Concomitant]
     Active Substance: ENOXAPARIN SODIUM
  11. IMATINIB SANDOZ [Concomitant]
  12. TORASEMID MEPHA [Concomitant]
     Active Substance: TORSEMIDE

REACTIONS (2)
  - Incorrect product administration duration [Recovered/Resolved]
  - Renal tubular injury [Not Recovered/Not Resolved]

NARRATIVE: CASE EVENT DATE: 20181023
